FAERS Safety Report 11777097 (Version 2)
Quarter: 2016Q1

REPORT INFORMATION
  Report Type: Report from Study
  Country: KR (occurrence: KR)
  Receive Date: 20151125
  Receipt Date: 20160118
  Transmission Date: 20160525
  Serious: Yes (Death, Other)
  Sender: FDA-Public Use
  Company Number: KR-CELGENE-286-20785-10010107

PATIENT

DRUGS (10)
  1. MELPHALAN [Concomitant]
     Active Substance: MELPHALAN
     Indication: PLASMA CELL MYELOMA
     Route: 048
  2. BISPHOSPHONATES [Concomitant]
     Active Substance: UNSPECIFIED INGREDIENT
     Indication: THROMBOSIS PROPHYLAXIS
     Route: 065
  3. BORTEZOMIB [Concomitant]
     Active Substance: BORTEZOMIB
     Route: 040
  4. BORTEZOMIB [Concomitant]
     Active Substance: BORTEZOMIB
     Route: 040
  5. PREDNISOLONE. [Concomitant]
     Active Substance: PREDNISOLONE
     Indication: PLASMA CELL MYELOMA
     Route: 048
  6. THALOMID [Suspect]
     Active Substance: THALIDOMIDE
     Indication: PLASMA CELL MYELOMA
     Route: 048
  7. THALOMID [Suspect]
     Active Substance: THALIDOMIDE
     Dosage: 100 MILLIGRAM
     Route: 048
  8. BORTEZOMIB [Concomitant]
     Active Substance: BORTEZOMIB
     Indication: PLASMA CELL MYELOMA
     Route: 040
  9. DEXAMETHASONE. [Concomitant]
     Active Substance: DEXAMETHASONE
     Indication: PLASMA CELL MYELOMA
     Route: 048
  10. ASPIRIN. [Concomitant]
     Active Substance: ASPIRIN
     Indication: THROMBOSIS PROPHYLAXIS
     Route: 048

REACTIONS (27)
  - Thrombocytopenia [Unknown]
  - Nausea [Unknown]
  - Vomiting [Unknown]
  - Peripheral sensory neuropathy [Unknown]
  - Asthenia [Unknown]
  - Renal failure [Fatal]
  - Delirium [Unknown]
  - Neuropathy peripheral [Unknown]
  - Pyrexia [Unknown]
  - Herpes zoster [Unknown]
  - Pneumonia [Fatal]
  - Hypoxia [Unknown]
  - Anaemia [Unknown]
  - Sepsis [Fatal]
  - Constipation [Unknown]
  - Neuralgia [Unknown]
  - Fatigue [Unknown]
  - Rash [Unknown]
  - Plasma cell myeloma [Fatal]
  - Embolism [Unknown]
  - Neutropenia [Unknown]
  - Leukopenia [Unknown]
  - Diarrhoea [Unknown]
  - Dizziness [Unknown]
  - Infection [Fatal]
  - Decreased appetite [Unknown]
  - Tremor [Unknown]
